FAERS Safety Report 6861624-5 (Version None)
Quarter: 2010Q3

REPORT INFORMATION
  Report Type: 
  Country: None (occurrence: None)
  Receive Date: 20100721
  Receipt Date: 20100706
  Transmission Date: 20110219
  Serious: Yes (Other)
  Sender: FDA-Public Use
  Company Number: CA-MYLANLABS-2010S1011885

PATIENT
  Age: 65 Year
  Sex: Male

DRUGS (12)
  1. AMIODARONE HCL [Suspect]
     Indication: ATRIAL FIBRILLATION
     Route: 065
  2. TACROLIMUS [Interacting]
     Indication: IMMUNOSUPPRESSION
     Route: 048
  3. MYCOPHENOLATE MOFETIL [Concomitant]
     Indication: IMMUNOSUPPRESSION
     Route: 048
  4. COTRIM [Concomitant]
     Route: 065
  5. METOPROLOL [Concomitant]
     Route: 065
  6. NIFEDIPINE [Concomitant]
     Route: 065
  7. SIMVASTATIN [Concomitant]
     Route: 065
  8. INSULIN [Concomitant]
     Indication: DIABETES MELLITUS
     Route: 065
  9. LANSOPRAZOLE [Concomitant]
     Route: 065
  10. BETAHISTINE [Concomitant]
     Route: 065
  11. CALCIUM CARBONATE [Concomitant]
     Route: 065
  12. ALFACALCIDOL [Concomitant]
     Route: 065

REACTIONS (2)
  - DRUG INTERACTION [None]
  - ELECTROCARDIOGRAM QT PROLONGED [None]
